FAERS Safety Report 21537371 (Version 5)
Quarter: 2023Q1

REPORT INFORMATION
  Report Type: Report from Study
  Country: CN (occurrence: CN)
  Receive Date: 20221101
  Receipt Date: 20230314
  Transmission Date: 20230417
  Serious: Yes (Hospitalization)
  Sender: FDA-Public Use
  Company Number: CN-JNJFOC-20221034052

PATIENT
  Age: 66 Year
  Sex: Female
  Weight: 44 kg

DRUGS (41)
  1. AMIVANTAMAB [Suspect]
     Active Substance: AMIVANTAMAB
     Indication: Non-small cell lung cancer metastatic
     Route: 042
     Dates: start: 20220315, end: 20220921
  2. PEMETREXED [Suspect]
     Active Substance: PEMETREXED
     Indication: Non-small cell lung cancer metastatic
     Route: 042
     Dates: start: 20220315, end: 20220921
  3. PEMETREXED [Suspect]
     Active Substance: PEMETREXED
     Dosage: D1 CHEMOTHERAPY
     Route: 042
     Dates: start: 20221109
  4. CARBOPLATIN [Concomitant]
     Active Substance: CARBOPLATIN
     Indication: Non-small cell lung cancer metastatic
     Route: 042
     Dates: start: 20220315, end: 20220518
  5. CHLORTETRACYCLINE HYDROCHLORIDE [Concomitant]
     Active Substance: CHLORTETRACYCLINE HYDROCHLORIDE
     Indication: Rash
     Dosage: UNK
     Route: 061
     Dates: start: 20220609
  6. COMPOUND DEXAMETHASONE ACETATE [CAMPHOR;DEXAMETHASONE ACETATE;MENTHOL] [Concomitant]
     Indication: Rash
     Dosage: UNK
     Route: 061
     Dates: start: 20220609, end: 20221025
  7. FUSIDIC ACID [Concomitant]
     Active Substance: FUSIDIC ACID
     Indication: Paronychia
     Route: 061
     Dates: start: 20220629
  8. MUSK [Concomitant]
     Indication: Constipation
     Dosage: UNK
     Route: 061
  9. DIAZEPAM [Concomitant]
     Active Substance: DIAZEPAM
     Indication: Delirium
     Route: 042
     Dates: start: 20221021, end: 20221021
  10. OLANZAPINE [Concomitant]
     Active Substance: OLANZAPINE
     Indication: Delirium
     Route: 048
     Dates: start: 20221025, end: 20221105
  11. LEUCOGEN [Concomitant]
     Active Substance: LEUCOGEN
     Indication: Prophylaxis
     Route: 048
     Dates: start: 20220831, end: 20220913
  12. LEUCOGEN [Concomitant]
     Active Substance: LEUCOGEN
     Route: 048
     Dates: start: 20220923, end: 20220930
  13. LEUCOGEN [Concomitant]
     Active Substance: LEUCOGEN
     Route: 048
     Dates: start: 20221003, end: 20221008
  14. LEUCOGEN [Concomitant]
     Active Substance: LEUCOGEN
     Route: 048
     Dates: start: 20221011, end: 20221020
  15. LEUCOGEN [Concomitant]
     Active Substance: LEUCOGEN
     Route: 048
     Dates: start: 20221025, end: 20221103
  16. CELECOXIB [Concomitant]
     Active Substance: CELECOXIB
     Indication: Chest pain
     Route: 048
     Dates: start: 20220831, end: 20220831
  17. CELECOXIB [Concomitant]
     Active Substance: CELECOXIB
     Route: 048
     Dates: start: 20220831, end: 20220914
  18. VITAMIN B6 [Concomitant]
     Active Substance: PYRIDOXINE HYDROCHLORIDE
     Indication: Prophylaxis of nausea and vomiting
     Route: 048
     Dates: start: 20220831, end: 20220917
  19. VITAMIN B6 [Concomitant]
     Active Substance: PYRIDOXINE HYDROCHLORIDE
     Indication: Hypoaesthesia
     Route: 048
     Dates: start: 20220923, end: 20220930
  20. VITAMIN B6 [Concomitant]
     Active Substance: PYRIDOXINE HYDROCHLORIDE
     Route: 048
     Dates: start: 20221003, end: 20221010
  21. FLUOROMETHOLONE [Concomitant]
     Active Substance: FLUOROMETHOLONE
     Indication: Pterygium
     Route: 050
     Dates: start: 20220831, end: 20221012
  22. RABEPRAZOLE SODIUM [Concomitant]
     Active Substance: RABEPRAZOLE SODIUM
     Indication: Prophylaxis
     Route: 048
     Dates: start: 20220901, end: 20220913
  23. RABEPRAZOLE SODIUM [Concomitant]
     Active Substance: RABEPRAZOLE SODIUM
     Route: 048
     Dates: start: 20221011, end: 20221020
  24. OPRELVEKIN [Concomitant]
     Active Substance: OPRELVEKIN
     Indication: Platelet count decreased
     Route: 058
     Dates: start: 20220907, end: 20220909
  25. OPRELVEKIN [Concomitant]
     Active Substance: OPRELVEKIN
     Route: 058
     Dates: start: 20220910, end: 20220911
  26. FUROSEMIDE [Concomitant]
     Active Substance: FUROSEMIDE
     Indication: Oedema peripheral
     Route: 042
     Dates: start: 20220921, end: 20220923
  27. ALBUMIN PREPARED FROM HUMAN PLASMA [Concomitant]
     Indication: Hypoalbuminaemia
     Route: 042
     Dates: start: 20220921, end: 20220923
  28. TRAMADOL HYDROCHLORIDE [Concomitant]
     Active Substance: TRAMADOL HYDROCHLORIDE
     Indication: Chest pain
     Route: 048
     Dates: start: 20220923, end: 20220930
  29. TRAMADOL HYDROCHLORIDE [Concomitant]
     Active Substance: TRAMADOL HYDROCHLORIDE
     Route: 048
     Dates: start: 20221003, end: 20221008
  30. COMPOUND GLYCYRRHIZIN [DL-METHIONINE;GLYCINE;GLYCYRRHIZIC ACID, AMMONI [Concomitant]
     Indication: Prophylaxis
     Route: 048
     Dates: start: 20221011, end: 20221025
  31. NITROFURAZONE [Concomitant]
     Active Substance: NITROFURAZONE
     Indication: Oedema peripheral
     Route: 061
     Dates: start: 20221012, end: 20221029
  32. TRIAMCINOLONE ACETONIDE ACETATE AND MICONAZOLE NITRATE AND NEOMYCIN SU [Concomitant]
     Indication: Oedema peripheral
     Route: 061
     Dates: start: 20221012
  33. DESLORATADINE [Concomitant]
     Active Substance: DESLORATADINE
     Indication: Rash
     Route: 048
     Dates: start: 20221012, end: 20221025
  34. POVIDONE-IODINE [Concomitant]
     Active Substance: POVIDONE-IODINE
     Indication: Rash
     Route: 061
     Dates: start: 20221013
  35. POVIDONE-IODINE [Concomitant]
     Active Substance: POVIDONE-IODINE
     Indication: Oedema peripheral
  36. POTASSIUM CHLORIDE [Concomitant]
     Active Substance: POTASSIUM CHLORIDE
     Indication: Hypokalaemia
     Route: 048
     Dates: start: 20221017, end: 20221018
  37. POTASSIUM CHLORIDE [Concomitant]
     Active Substance: POTASSIUM CHLORIDE
     Route: 042
     Dates: start: 20221017, end: 20221025
  38. FERRIC POLYSACCHARIDE COMPLEX [Concomitant]
     Active Substance: FERRIC POLYSACCHARIDE COMPLEX
     Indication: Anaemia
     Route: 048
     Dates: start: 20221025, end: 20221103
  39. YI XUE SHENG [Concomitant]
     Indication: Anaemia
     Route: 048
     Dates: start: 20221025, end: 20221103
  40. YUN NAN BAI YAO [ACONITUM KUSNEZOFFII ROOT;HERBAL NOS] [Concomitant]
     Indication: Paronychia
     Route: 061
     Dates: start: 20220801
  41. FLURBIPROFEN [Concomitant]
     Active Substance: FLURBIPROFEN
     Indication: Chest pain
     Route: 050
     Dates: start: 20220921, end: 20221028

REACTIONS (4)
  - Dizziness [Recovered/Resolved]
  - Malaise [Not Recovered/Not Resolved]
  - Vomiting [Recovered/Resolved]
  - Decreased appetite [Recovered/Resolved]

NARRATIVE: CASE EVENT DATE: 20220923
